FAERS Safety Report 17866390 (Version 2)
Quarter: 2020Q2

REPORT INFORMATION
  Report Type: Report from Study
  Country: None (occurrence: CO)
  Receive Date: 20200605
  Receipt Date: 20200619
  Transmission Date: 20200714
  Serious: Yes (Hospitalization, Other)
  Sender: FDA-Public Use
  Company Number: CO-ABBVIE-19K-036-3176593-00

PATIENT
  Age: 44 Year
  Sex: Male
  Weight: 50 kg

DRUGS (2)
  1. HUMIRA [Suspect]
     Active Substance: ADALIMUMAB
     Indication: PSORIASIS
     Route: 058
     Dates: start: 20160126
  2. HUMIRA [Suspect]
     Active Substance: ADALIMUMAB
     Indication: PSORIASIS
     Route: 058
     Dates: end: 20190715

REACTIONS (5)
  - Tuberculosis [Recovering/Resolving]
  - Gait disturbance [Recovering/Resolving]
  - Bacteraemia [Not Recovered/Not Resolved]
  - Psoriasis [Unknown]
  - Immunosuppression [Recovering/Resolving]

NARRATIVE: CASE EVENT DATE: 201911
